FAERS Safety Report 21751669 (Version 3)
Quarter: 2023Q1

REPORT INFORMATION
  Report Type: Report from Study
  Country: US (occurrence: US)
  Receive Date: 20221220
  Receipt Date: 20230213
  Transmission Date: 20230417
  Serious: No
  Sender: FDA-Public Use
  Company Number: US-002147023-NVSC2022US292148

PATIENT
  Sex: Female

DRUGS (1)
  1. COSENTYX [Suspect]
     Active Substance: SECUKINUMAB
     Indication: Psoriasis
     Dosage: 300 MG/KG
     Route: 065

REACTIONS (4)
  - COVID-19 [Recovering/Resolving]
  - Pruritus [Unknown]
  - Sinusitis [Unknown]
  - Product dose omission issue [Unknown]
